FAERS Safety Report 6905047-9 (Version None)
Quarter: 2010Q3

REPORT INFORMATION
  Report Type: 
  Country: None (occurrence: None)
  Receive Date: 20100804
  Receipt Date: 20090828
  Transmission Date: 20110219
  Serious: No
  Sender: FDA-Public Use
  Company Number: US-PFIZER INC-2009233378

PATIENT
  Sex: Male
  Weight: 108.86 kg

DRUGS (6)
  1. LYRICA [Suspect]
     Indication: DIABETIC NEUROPATHY
     Dosage: 50 MG, 2X/DAY
     Dates: start: 20070101, end: 20090601
  2. AMITRIPTYLINE [Concomitant]
     Dosage: 25 MG, UNK
  3. METFORMIN [Concomitant]
     Dosage: 500 MG, 2X/DAY
  4. GLIPIZIDE [Concomitant]
     Dosage: 10 MG, 2X/DAY
  5. ZOCOR [Concomitant]
     Dosage: 20 MG, 1X/DAY
  6. SITAGLIPTIN [Concomitant]
     Dosage: 100 MG, 1X/DAY

REACTIONS (5)
  - DRUG INEFFECTIVE [None]
  - GAIT DISTURBANCE [None]
  - PAIN [None]
  - PAIN IN EXTREMITY [None]
  - WEIGHT INCREASED [None]
